FAERS Safety Report 5699858-8 (Version None)
Quarter: 2008Q2

REPORT INFORMATION
  Report Type: 
  Country: None (occurrence: None)
  Receive Date: 20080410
  Receipt Date: 20080404
  Transmission Date: 20081010
  Serious: Yes (Hospitalization)
  Sender: FDA-Public Use
  Company Number: JP-BOEHRINGER INGELHEIM GMBH, GERMANY-2008-BP-05315NB

PATIENT
  Age: 64 Year
  Sex: Male

DRUGS (5)
  1. MICARDIS [Suspect]
     Indication: HYPERTENSION
     Route: 048
     Dates: start: 20080328, end: 20080404
  2. CEFZON [Concomitant]
     Route: 048
     Dates: start: 20080401, end: 20080404
  3. HALTHROW (TAMSULOSIN HYDROCHLORIDE) [Concomitant]
     Route: 048
     Dates: start: 20080328, end: 20080404
  4. INSULIN [Concomitant]
     Route: 058
     Dates: start: 20080328, end: 20080404
  5. UBRETID [Concomitant]
     Route: 048
     Dates: start: 20080328, end: 20080404

REACTIONS (1)
  - INTERSTITIAL LUNG DISEASE [None]
